FAERS Safety Report 6411457-9 (Version None)
Quarter: 2009Q4

REPORT INFORMATION
  Report Type: 
  Country: None (occurrence: None)
  Receive Date: 20091023
  Receipt Date: 20090922
  Transmission Date: 20100525
  Serious: No
  Sender: FDA-Public Use
  Company Number: US-BAYER-200933855NA

PATIENT
  Age: 39 Year
  Sex: Male

DRUGS (2)
  1. AVELOX [Suspect]
     Indication: BRONCHITIS
  2. ADVAIR DISKUS 100/50 [Concomitant]

REACTIONS (1)
  - DYSGEUSIA [None]
